FAERS Safety Report 9602977 (Version 4)
Quarter: 2014Q1

REPORT INFORMATION
  Report Type: Spontaneous
  Country: US (occurrence: US)
  Receive Date: 20131007
  Receipt Date: 20140228
  Transmission Date: 20141002
  Serious: Yes (Hospitalization, Other)
  Sender: FDA-Public Use
  Company Number: US-PFIZER INC-2013282183

PATIENT
  Age: 51 Year
  Sex: Female

DRUGS (3)
  1. XALKORI [Suspect]
     Indication: LUNG NEOPLASM MALIGNANT
     Dosage: 250 MG, 2X/DAY
     Route: 048
     Dates: start: 20130826
  2. XALKORI [Suspect]
     Dosage: UNK
  3. XALKORI [Suspect]
     Dosage: UNK

REACTIONS (17)
  - Appendicitis perforated [Unknown]
  - Vaginal haemorrhage [Unknown]
  - Dyspnoea [Unknown]
  - Wheezing [Unknown]
  - Diplopia [Unknown]
  - Hypoaesthesia [Unknown]
  - Paraesthesia [Unknown]
  - Fatigue [Unknown]
  - Vision blurred [Unknown]
  - Abdominal pain upper [Unknown]
  - Abdominal tenderness [Unknown]
  - Nausea [Unknown]
  - Vomiting [Unknown]
  - Photophobia [Unknown]
  - Diarrhoea [Unknown]
  - Asthenia [Unknown]
  - Back pain [Unknown]
